FAERS Safety Report 14327498 (Version 6)
Quarter: 2018Q3

REPORT INFORMATION
  Report Type: Spontaneous
  Country: GB (occurrence: GB)
  Receive Date: 20171227
  Receipt Date: 20180728
  Transmission Date: 20181010
  Serious: Yes (Life-Threatening, Hospitalization, Other)
  Sender: FDA-Public Use
  Company Number: GB-TEVA-2017-GB-836513

PATIENT
  Age: 23 Year
  Sex: Female

DRUGS (4)
  1. CITALOPRAM [Suspect]
     Active Substance: CITALOPRAM HYDROBROMIDE
     Indication: INTENTIONAL OVERDOSE
     Dosage: INTENTIONAL OVERDOSE OF 220 MG CITALOPRAM
     Route: 065
  2. CIPRAMIL [Suspect]
     Active Substance: CITALOPRAM HYDROBROMIDE
     Indication: INTENTIONAL OVERDOSE
  3. CHLORPHENIRAMINE. [Suspect]
     Active Substance: CHLORPHENIRAMINE
     Indication: INTENTIONAL OVERDOSE
     Dosage: INTENTIONAL OVERDOSE OF 56 MG CHLORPHENIRAMINE
     Route: 065
  4. LAMOTRIGINE. [Suspect]
     Active Substance: LAMOTRIGINE
     Indication: INTENTIONAL OVERDOSE
     Dosage: INTENTIONAL OVERDOSE OF 9.2 G LAMOTRIGINE
     Route: 048

REACTIONS (13)
  - Agitation [Recovered/Resolved]
  - Nystagmus [Recovered/Resolved]
  - Depressed level of consciousness [Recovered/Resolved]
  - Toxicity to various agents [Unknown]
  - Body temperature increased [Unknown]
  - Overdose [Unknown]
  - Tremor [Recovered/Resolved]
  - Electrocardiogram QT prolonged [Recovered/Resolved]
  - Sluggishness [Recovered/Resolved]
  - Metabolic acidosis [Recovered/Resolved]
  - Vomiting [Recovered/Resolved]
  - Electrocardiogram QRS complex prolonged [Recovered/Resolved]
  - Sinus tachycardia [Recovered/Resolved]
